FAERS Safety Report 15151395 (Version 2)
Quarter: 2018Q3

REPORT INFORMATION
  Report Type: Spontaneous
  Country: IT (occurrence: IT)
  Receive Date: 20180716
  Receipt Date: 20180802
  Transmission Date: 20181010
  Serious: Yes (Hospitalization, Other)
  Sender: FDA-Public Use
  Company Number: IT-SA-2018SA044822

PATIENT
  Age: 81 Year
  Sex: Female

DRUGS (13)
  1. CLEXANE T [Suspect]
     Active Substance: ENOXAPARIN SODIUM
     Dosage: 12000 IU,QD
     Route: 065
  2. MEDIPO [Concomitant]
     Active Substance: SIMVASTATIN
     Dosage: UNK UNK, UNK
  3. SPIRONOLACTONE. [Concomitant]
     Active Substance: SPIRONOLACTONE
     Dosage: UNK UNK, UNK
  4. CREON [Concomitant]
     Active Substance: PANCRELIPASE AMYLASE\PANCRELIPASE LIPASE\PANCRELIPASE PROTEASE
     Dosage: UNK UNK, UNK
  5. ACETYLSALICYLIC ACID [Suspect]
     Active Substance: ASPIRIN
     Dosage: 100 MG,QD
     Route: 065
  6. PEPTAZOL [LANSOPRAZOLE] [Concomitant]
     Dosage: UNK UNK, UNK
  7. FUROSEMIDE. [Concomitant]
     Active Substance: FUROSEMIDE
  8. LASIX + K [Concomitant]
     Active Substance: FUROSEMIDE\POTASSIUM CHLORIDE
     Dosage: UNK UNK, UNK
  9. METOPROLOL. [Concomitant]
     Active Substance: METOPROLOL
     Dosage: UNK UNK, UNK
  10. EUTIROX [Concomitant]
     Active Substance: LEVOTHYROXINE SODIUM
     Route: 065
  11. TRIATEC [RAMIPRIL] [Concomitant]
     Dosage: UNK UNK, UNK
  12. LANSOPRAZOLE. [Concomitant]
     Active Substance: LANSOPRAZOLE
     Dosage: UNK UNK, UNK
  13. ALDACTONE 50 HCT [Concomitant]
     Dosage: UNK UNK, UNK

REACTIONS (4)
  - Drug interaction [Unknown]
  - Abdominal pain [Unknown]
  - Arterial haemorrhage [Unknown]
  - Haematoma [Unknown]

NARRATIVE: CASE EVENT DATE: 20171114
